FAERS Safety Report 20429981 (Version 1)
Quarter: 2022Q1

REPORT INFORMATION
  Report Type: Report from Study
  Country: FR (occurrence: FR)
  Receive Date: 20220204
  Receipt Date: 20220204
  Transmission Date: 20220423
  Serious: Yes (Hospitalization)
  Sender: FDA-Public Use
  Company Number: FR-SERVIER-S19004842

PATIENT

DRUGS (6)
  1. ONCASPAR [Suspect]
     Active Substance: PEGASPARGASE
     Indication: Acute lymphocytic leukaemia
     Dosage: 1725 IU, ON DAYS 12, 26, 15, 6
     Route: 042
     Dates: start: 20171218, end: 20181203
  2. MERCAPTOPURINE [Suspect]
     Active Substance: MERCAPTOPURINE
     Indication: Acute lymphocytic leukaemia
     Dosage: 6 MG, QD
     Route: 048
     Dates: start: 20180424
  3. METHOTREXATE [Suspect]
     Active Substance: METHOTREXATE
     Indication: Acute lymphocytic leukaemia
     Dosage: 340 MG, ONE DOSE, ON DAY 8
     Route: 042
     Dates: start: 20180501, end: 20180501
  4. METHOTREXATE [Suspect]
     Active Substance: METHOTREXATE
     Dosage: 12 MG, ONE DOSE, ON DAY 9
     Route: 037
     Dates: start: 20180502, end: 20180502
  5. METHOTREXATE [Suspect]
     Active Substance: METHOTREXATE
     Dosage: 200 MG, ONE DOSE, ON DAY 36
     Route: 042
     Dates: start: 20180531, end: 20180531
  6. METHOTREXATE SODIUM [Suspect]
     Active Substance: METHOTREXATE SODIUM
     Indication: Acute lymphocytic leukaemia
     Dosage: 12 MG, ONE DOSE
     Route: 037
     Dates: start: 20180502

REACTIONS (1)
  - Seizure [Recovered/Resolved]

NARRATIVE: CASE EVENT DATE: 20180511
